FAERS Safety Report 9854846 (Version 1)
Quarter: 2014Q1

REPORT INFORMATION
  Report Type: Spontaneous
  Country: US (occurrence: None)
  Receive Date: 20140127
  Receipt Date: 20140127
  Transmission Date: 20141002
  Serious: Yes (Death)
  Sender: FDA-Public Use
  Company Number: SYM-2014-15121

PATIENT
  Age: 72 Year
  Sex: Female

DRUGS (1)
  1. XENAZINE (TETRABENAZINE) [Suspect]
     Indication: DYSKINESIA
     Dosage: ORAL
     Route: 048

REACTIONS (1)
  - Death [None]
